FAERS Safety Report 17399130 (Version 4)
Quarter: 2020Q3

REPORT INFORMATION
  Report Type: Report from Study
  Country: None (occurrence: CO)
  Receive Date: 20200210
  Receipt Date: 20200805
  Transmission Date: 20201102
  Serious: Yes (Death, Hospitalization, Other)
  Sender: FDA-Public Use
  Company Number: CO-ABBVIE-20K-036-3268194-00

PATIENT
  Age: 79 Year
  Sex: Male
  Weight: 110 kg

DRUGS (1)
  1. HUMIRA [Suspect]
     Active Substance: ADALIMUMAB
     Indication: RHEUMATOID ARTHRITIS
     Route: 058
     Dates: start: 20180103, end: 20200103

REACTIONS (10)
  - Musculoskeletal disorder [Recovering/Resolving]
  - Cardiac disorder [Recovering/Resolving]
  - Platelet transfusion [Recovering/Resolving]
  - Heart rate decreased [Recovering/Resolving]
  - Myocardial infarction [Fatal]
  - Blood pressure abnormal [Recovering/Resolving]
  - Inflammation [Recovering/Resolving]
  - Asthenia [Unknown]
  - Chronic obstructive pulmonary disease [Recovering/Resolving]
  - Erysipelas [Recovering/Resolving]

NARRATIVE: CASE EVENT DATE: 201912
